FAERS Safety Report 8235816-7 (Version None)
Quarter: 2012Q1

REPORT INFORMATION
  Report Type: 
  Country: None (occurrence: None)
  Receive Date: 20120326
  Receipt Date: 20120320
  Transmission Date: 20120608
  Serious: Yes (Hospitalization)
  Sender: FDA-Public Use
  Company Number: US-PFIZER INC-2012072939

PATIENT
  Sex: Female
  Weight: 100.68 kg

DRUGS (6)
  1. CYMBALTA [Concomitant]
     Dosage: UNK
  2. MORPHINE [Concomitant]
     Dosage: UNK
  3. DOCUSATE [Concomitant]
     Dosage: UNK
  4. CLONAZEPAM [Concomitant]
     Dosage: UNK
  5. OXYCODONE [Concomitant]
     Dosage: UNK
  6. GABAPENTIN [Suspect]
     Indication: NEUROPATHY PERIPHERAL
     Dosage: 300 MG, 3X/DAY
     Route: 048

REACTIONS (3)
  - FALL [None]
  - SOMNAMBULISM [None]
  - OEDEMA PERIPHERAL [None]
